FAERS Safety Report 17391083 (Version 1)
Quarter: 2020Q1

REPORT INFORMATION
  Report Type: Spontaneous
  Country: JP (occurrence: JP)
  Receive Date: 20200207
  Receipt Date: 20200207
  Transmission Date: 20200409
  Serious: Yes (Other)
  Sender: FDA-Public Use
  Company Number: JP-OTSUKA-2020_003497

PATIENT
  Sex: Male

DRUGS (2)
  1. ABILIFY MAINTENA [Suspect]
     Active Substance: ARIPIPRAZOLE
     Dosage: UNK, FOR FEW MONTHS
     Route: 030
     Dates: start: 2018
  2. ABILIFY MAINTENA [Suspect]
     Active Substance: ARIPIPRAZOLE
     Indication: PRODUCT USED FOR UNKNOWN INDICATION
     Dosage: UNK
     Route: 030
     Dates: start: 2019

REACTIONS (4)
  - Somnolence [Unknown]
  - Feeling abnormal [Unknown]
  - Cerebral ischaemia [Unknown]
  - Yawning [Unknown]
